FAERS Safety Report 8245336-1 (Version None)
Quarter: 2012Q1

REPORT INFORMATION
  Report Type: 
  Country: None (occurrence: None)
  Receive Date: 20120329
  Receipt Date: 20120322
  Transmission Date: 20120608
  Serious: Yes (Other)
  Sender: FDA-Public Use
  Company Number: GR-ABBOTT-12P-066-0916309-00

PATIENT
  Age: 4 Year
  Sex: Male
  Weight: 15 kg

DRUGS (4)
  1. PHENYLEPHRINE HCL [Suspect]
     Indication: MYDRIASIS
     Route: 047
  2. ESMOLOL HCL [Suspect]
     Route: 042
  3. SEVOFLURANE [Suspect]
     Indication: GENERAL ANAESTHESIA
  4. OXYGEN [Concomitant]

REACTIONS (6)
  - MYDRIASIS [None]
  - HYPERTENSION [None]
  - PULMONARY OEDEMA [None]
  - OXYGEN SATURATION DECREASED [None]
  - TACHYPNOEA [None]
  - HEART RATE INCREASED [None]
